FAERS Safety Report 7380668-0 (Version None)
Quarter: 2011Q1

REPORT INFORMATION
  Report Type: 
  Country: None (occurrence: None)
  Receive Date: 20110329
  Receipt Date: 20110315
  Transmission Date: 20110831
  Serious: Yes (Hospitalization)
  Sender: FDA-Public Use
  Company Number: GB-ELI_LILLY_AND_COMPANY-GB201103004978

PATIENT
  Age: 51 Year
  Sex: Female

DRUGS (8)
  1. TRAMADOL [Concomitant]
     Dosage: 20 MG, QD
  2. PROPRANOLOL [Concomitant]
     Dosage: 80 MG, QD
  3. CARBOPLATIN [Suspect]
     Indication: LUNG NEOPLASM MALIGNANT
     Dosage: UNK
     Dates: start: 20101109
  4. DOMPERIDONE [Concomitant]
     Dosage: 10 MG, QD
     Dates: start: 20101109
  5. GEMCITABINE HYDROCHLORIDE [Suspect]
     Indication: LUNG NEOPLASM MALIGNANT
     Dosage: UNK
     Dates: start: 20101109
  6. LANSOPRAZOLE [Concomitant]
     Dosage: 20 MG, QD
  7. OTHER PHARMA COMPANY INV DRUG [Suspect]
     Indication: LUNG NEOPLASM MALIGNANT
     Dosage: UNK
     Dates: start: 20101109, end: 20101124
  8. CARBOPLATIN [Suspect]
     Dosage: REDUCED DOSE

REACTIONS (1)
  - HAEMOPTYSIS [None]
